FAERS Safety Report 21425798 (Version 2)
Quarter: 2022Q4

REPORT INFORMATION
  Report Type: Report from Study
  Country: AR (occurrence: None)
  Receive Date: 20221008
  Receipt Date: 20221123
  Transmission Date: 20230113
  Serious: Yes (Other)
  Sender: FDA-Public Use
  Company Number: AR-Merck Healthcare KGaA-9355767

PATIENT
  Sex: Female

DRUGS (1)
  1. REBIF [Suspect]
     Active Substance: INTERFERON BETA-1A
     Indication: Multiple sclerosis
     Route: 058
     Dates: start: 20210611

REACTIONS (6)
  - Cardiac disorder [Unknown]
  - Chest pain [Unknown]
  - Tachycardia [Unknown]
  - Chest discomfort [Unknown]
  - Hypoaesthesia [Unknown]
  - Cyanosis [Unknown]
